FAERS Safety Report 7111762-7 (Version None)
Quarter: 2010Q4

REPORT INFORMATION
  Report Type: 
  Country: None (occurrence: None)
  Receive Date: 20101118
  Receipt Date: 20101105
  Transmission Date: 20110411
  Serious: Yes (Hospitalization, Other)
  Sender: FDA-Public Use
  Company Number: US-ELI_LILLY_AND_COMPANY-US201011002764

PATIENT
  Sex: Female

DRUGS (12)
  1. FORTEO [Suspect]
     Indication: OSTEOPOROSIS
     Dosage: 20 UG, DAILY (1/D)
     Dates: end: 20101024
  2. LISINOPRIL [Concomitant]
     Dosage: 5 MG, UNK
  3. LASIX [Concomitant]
     Dosage: 40 MG, UNK
  4. METOPROLOL [Concomitant]
     Dosage: 25 MG, UNK
  5. STOOL SOFTENER [Concomitant]
  6. VITAMIN D [Concomitant]
     Dosage: UNK, WEEKLY (1/W)
  7. SEREVENT [Concomitant]
     Dosage: 1 D/F, 2/D
     Route: 055
  8. FLOVENT [Concomitant]
     Dosage: 2 D/F, 2/D
     Route: 055
  9. LORAZEPAM [Concomitant]
     Dosage: 0.5 MG, AS NEEDED
  10. OXYCODONE HCL AND ACETAMINOPHEN [Concomitant]
     Dosage: UNK, AS NEEDED
  11. PROTONIX [Concomitant]
     Dosage: 40 MG, DAILY (1/D)
  12. LEVETIRACETAM [Concomitant]
     Dosage: 1000 MG, 2/D

REACTIONS (10)
  - ALTERED STATE OF CONSCIOUSNESS [None]
  - AMNESIA [None]
  - BRAIN NEOPLASM [None]
  - CALCINOSIS [None]
  - CONTUSION [None]
  - CONVULSION [None]
  - OEDEMA PERIPHERAL [None]
  - TREMOR [None]
  - TUNNEL VISION [None]
  - VISUAL IMPAIRMENT [None]
